FAERS Safety Report 8836857 (Version 4)
Quarter: 2012Q4

REPORT INFORMATION
  Report Type: 
  Country: JP (occurrence: JP)
  Receive Date: 20121012
  Receipt Date: 20121025
  Transmission Date: 20130627
  Serious: Yes (Other)
  Sender: FDA-Public Use
  Company Number: JP-MERCK-1210JPN002768

PATIENT
  Age: 69 Year
  Sex: Male

DRUGS (7)
  1. UNSPECIFIED INGREDIENT [Suspect]
     Dosage: 100 mg, qd
     Route: 042
     Dates: start: 20110630, end: 20110702
  2. UNSPECIFIED INGREDIENT [Suspect]
     Dosage: 30 mg, qd
     Route: 048
     Dates: start: 20110703
  3. UNSPECIFIED INGREDIENT [Suspect]
     Dosage: 20 mg, qd
     Route: 048
  4. UNSPECIFIED INGREDIENT [Suspect]
     Dosage: 10 mg in the morning and 5 mg in the evening
     Route: 048
  5. LEVOMEPROMAZINE [Concomitant]
     Route: 048
  6. CHLORPROMAZINE [Concomitant]
     Route: 048
  7. ETIZOLAM [Concomitant]
     Route: 048

REACTIONS (1)
  - Psychiatric symptom [Recovered/Resolved]
